FAERS Safety Report 6230857-3 (Version None)
Quarter: 2009Q2

REPORT INFORMATION
  Report Type: 
  Country: None (occurrence: None)
  Receive Date: 20090611
  Receipt Date: 20090605
  Transmission Date: 20091009
  Serious: Yes (Other)
  Sender: FDA-Public Use
  Company Number: ADR2442009 (MHRA ADR NO.: ADR 20384793-004)

PATIENT
  Sex: Female

DRUGS (1)
  1. SERTRALINE [Suspect]

REACTIONS (1)
  - NEUROPATHY PERIPHERAL [None]
